FAERS Safety Report 4931196-0 (Version None)
Quarter: 2006Q1

REPORT INFORMATION
  Report Type: 
  Country: None (occurrence: None)
  Receive Date: 20060227
  Receipt Date: 20060214
  Transmission Date: 20060701
  Serious: Yes (Other)
  Sender: FDA-Public Use
  Company Number: 2006022636

PATIENT
  Age: 60 Year
  Sex: Female

DRUGS (2)
  1. NEURONTIN [Suspect]
     Indication: PROCEDURAL PAIN
     Dates: start: 20031101
  2. PANADEINE FORTE (CODEINE PHOSPHATE, PARACETAMOL) [Concomitant]

REACTIONS (5)
  - BACK PAIN [None]
  - EOSINOPHIL COUNT INCREASED [None]
  - MIOSIS [None]
  - RENAL FAILURE ACUTE [None]
  - SOMNOLENCE [None]
